FAERS Safety Report 4687902-6 (Version None)
Quarter: 2005Q2

REPORT INFORMATION
  Report Type: 
  Country: None (occurrence: None)
  Receive Date: 20050610
  Receipt Date: 20050606
  Transmission Date: 20051028
  Serious: Yes (Other)
  Sender: FDA-Public Use
  Company Number: US-GLAXOSMITHKLINE-A0561389A

PATIENT
  Age: 5 Year
  Sex: Male

DRUGS (1)
  1. LAMICTAL [Suspect]
     Indication: AUTISM
     Dosage: 25MG TWICE PER DAY
     Route: 048
     Dates: start: 20040401

REACTIONS (2)
  - CONVULSION [None]
  - MENTAL IMPAIRMENT [None]
